FAERS Safety Report 8042112-X (Version None)
Quarter: 2012Q1

REPORT INFORMATION
  Report Type: 
  Country: None (occurrence: None)
  Receive Date: 20120112
  Receipt Date: 20111230
  Transmission Date: 20120608
  Serious: Yes (Hospitalization)
  Sender: FDA-Public Use
  Company Number: FR-SANOFI-AVENTIS-2011SA085663

PATIENT
  Age: 35 Year
  Sex: Male

DRUGS (6)
  1. AMITRIPTYLINE HCL [Suspect]
     Route: 065
     Dates: start: 20110824, end: 20110919
  2. FLUCONAZOLE [Concomitant]
     Indication: SEPSIS
     Route: 065
     Dates: start: 20110818, end: 20110913
  3. NEXIUM [Suspect]
     Route: 065
     Dates: start: 20110725, end: 20110919
  4. LOVENOX [Suspect]
     Route: 065
     Dates: start: 20110913, end: 20110919
  5. PIPERACILLIN AND TAZOBACTAM [Concomitant]
     Indication: SEPSIS
     Route: 065
     Dates: start: 20110818, end: 20110913
  6. VANCOMYCIN [Concomitant]
     Indication: SEPSIS
     Route: 065
     Dates: start: 20110818, end: 20110913

REACTIONS (1)
  - DRUG RASH WITH EOSINOPHILIA AND SYSTEMIC SYMPTOMS [None]
